FAERS Safety Report 6414448-7 (Version None)
Quarter: 2009Q4

REPORT INFORMATION
  Report Type: 
  Country: None (occurrence: None)
  Receive Date: 20091026
  Receipt Date: 20091013
  Transmission Date: 20100525
  Serious: Yes (Hospitalization)
  Sender: FDA-Public Use
  Company Number: PHHY2009AU45435

PATIENT
  Age: 84 Year
  Sex: Female

DRUGS (4)
  1. ACLASTA [Suspect]
     Dosage: UNK
     Dates: start: 20090813
  2. METHOTREXATE [Concomitant]
  3. PREDNISOLONE [Concomitant]
     Dosage: UNK
  4. HUMIRA [Concomitant]
     Dosage: UNK

REACTIONS (3)
  - OEDEMA PERIPHERAL [None]
  - PAIN IN EXTREMITY [None]
  - SEPSIS [None]
